FAERS Safety Report 5733261-7 (Version None)
Quarter: 2008Q2

REPORT INFORMATION
  Report Type: 
  Country: None (occurrence: None)
  Receive Date: 20080509
  Receipt Date: 20080502
  Transmission Date: 20081010
  Serious: Yes (Other)
  Sender: FDA-Public Use
  Company Number: A0727071A

PATIENT
  Age: 70 Year
  Sex: Female

DRUGS (3)
  1. LAMICTAL [Suspect]
     Dosage: 50MG PER DAY
     Route: 048
  2. DEPAKOTE [Suspect]
     Dosage: 250MG PER DAY
     Route: 048
     Dates: start: 20061107, end: 20070215
  3. LEVOTHYROXINE SODIUM [Concomitant]
     Dosage: .125MG PER DAY

REACTIONS (4)
  - AMMONIA INCREASED [None]
  - MUSCLE RIGIDITY [None]
  - PARKINSONISM [None]
  - TREMOR [None]
